FAERS Safety Report 17884740 (Version 2)
Quarter: 2020Q2

REPORT INFORMATION
  Report Type: Spontaneous
  Country: US (occurrence: US)
  Receive Date: 20200611
  Receipt Date: 20200618
  Transmission Date: 20200714
  Serious: Yes (Hospitalization, Other)
  Sender: FDA-Public Use
  Company Number: US-HBP-2020US020683

PATIENT
  Age: 81 Year
  Sex: Male

DRUGS (1)
  1. VALCHLOR [Suspect]
     Active Substance: MECHLORETHAMINE
     Indication: CUTANEOUS T-CELL LYMPHOMA
     Dosage: UNK, QD
     Route: 061

REACTIONS (4)
  - Incision site ulcer [Recovering/Resolving]
  - Intentional dose omission [Unknown]
  - Cerebral haemorrhage [Unknown]
  - Hospitalisation [Recovering/Resolving]

NARRATIVE: CASE EVENT DATE: 20200513
